FAERS Safety Report 4449708-2 (Version None)
Quarter: 2004Q3

REPORT INFORMATION
  Report Type: 
  Country: None (occurrence: None)
  Receive Date: 20040913
  Receipt Date: 20040831
  Transmission Date: 20050211
  Serious: Yes (Other)
  Sender: FDA-Public Use
  Company Number: 2004231577GB

PATIENT
  Age: 61 Year
  Sex: Female

DRUGS (5)
  1. CELEBREX [Suspect]
     Dosage: 200 MG, BID, ORAL
     Route: 048
     Dates: start: 19990101
  2. PENTASA [Concomitant]
  3. BENDROFLUAZIDE [Concomitant]
  4. LOFEPRAMINE [Concomitant]
  5. SIMVASTATIN [Concomitant]

REACTIONS (1)
  - PSORIASIS [None]
